FAERS Safety Report 6816422-5 (Version None)
Quarter: 2010Q3

REPORT INFORMATION
  Report Type: 
  Country: None (occurrence: None)
  Receive Date: 20100705
  Receipt Date: 20100629
  Transmission Date: 20110219
  Serious: Yes (Other)
  Sender: FDA-Public Use
  Company Number: FR-BRISTOL-MYERS SQUIBB COMPANY-14986251

PATIENT
  Age: 21 Year
  Sex: Male
  Weight: 72 kg

DRUGS (1)
  1. ABILIFY [Suspect]
     Indication: SCHIZOPHRENIA
     Dosage: INITIATED AT 5MG/D INCREASED TO 10MG/D FOR 3MONTHS DOSE REDUCED TO 5MG/D. ONGOING
     Route: 048
     Dates: start: 20091028

REACTIONS (1)
  - BUNDLE BRANCH BLOCK RIGHT [None]
